FAERS Safety Report 4331052-5 (Version None)
Quarter: 2004Q1

REPORT INFORMATION
  Report Type: 
  Country: None (occurrence: None)
  Receive Date: 20040331
  Receipt Date: 20040325
  Transmission Date: 20041129
  Serious: Yes (Death)
  Sender: FDA-Public Use
  Company Number: 2004UW05867

PATIENT
  Age: 24 Year
  Sex: Male

DRUGS (5)
  1. DIPRIVAN [Suspect]
     Indication: SEDATION
     Dosage: 1000 MG/HR IV
     Route: 042
  2. RANITIDINE [Concomitant]
  3. PEPERACILLIN [Concomitant]
  4. VENTOLIN [Concomitant]
  5. MANNITOL [Concomitant]

REACTIONS (3)
  - CIRCULATORY COLLAPSE [None]
  - INFUSION RELATED REACTION [None]
  - METABOLIC ACIDOSIS [None]
